FAERS Safety Report 25500577 (Version 1)
Quarter: 2025Q3

REPORT INFORMATION
  Report Type: Spontaneous
  Country: US (occurrence: US)
  Receive Date: 20250701
  Receipt Date: 20250701
  Transmission Date: 20251021
  Serious: No
  Sender: NEUROCRINE BIOSCIENCES
  Company Number: US-NEUROCRINE BIOSCIENCES INC.-2025NBI07386

PATIENT
  Sex: Female

DRUGS (1)
  1. INGREZZA [Suspect]
     Active Substance: VALBENAZINE DITOSYLATE
     Indication: Tardive dyskinesia
     Route: 065

REACTIONS (8)
  - Tremor [Unknown]
  - Head titubation [Unknown]
  - Heart rate increased [Unknown]
  - Dyspnoea [Unknown]
  - Brain fog [Unknown]
  - Affective disorder [Unknown]
  - Nausea [Unknown]
  - Headache [Unknown]
